APPROVED DRUG PRODUCT: GLYBURIDE
Active Ingredient: GLYBURIDE
Strength: 2.5MG
Dosage Form/Route: TABLET;ORAL
Application: A077537 | Product #002
Applicant: AUROBINDO PHARMA LTD
Approved: Oct 18, 2007 | RLD: No | RS: No | Type: DISCN